FAERS Safety Report 4703892-1 (Version None)
Quarter: 2005Q2

REPORT INFORMATION
  Report Type: 
  Country: None (occurrence: None)
  Receive Date: 20050630
  Receipt Date: 20020228
  Transmission Date: 20051028
  Serious: Yes (Other)
  Sender: FDA-Public Use
  Company Number: US-AMGEN-US010115

PATIENT
  Sex: Female

DRUGS (6)
  1. KINERET [Suspect]
     Indication: RHEUMATOID ARTHRITIS
     Route: 058
     Dates: start: 20020208, end: 20020226
  2. PREDNISONE TAB [Concomitant]
     Route: 048
     Dates: start: 20010724
  3. METHOTREXATE [Concomitant]
     Route: 048
     Dates: start: 20011026
  4. FOLIC ACID [Concomitant]
     Dates: start: 20011026
  5. PRILOSEC [Concomitant]
     Dates: start: 20011026
  6. EFFEXOR [Concomitant]

REACTIONS (5)
  - ANGIONEUROTIC OEDEMA [None]
  - DRUG HYPERSENSITIVITY [None]
  - HYPERSENSITIVITY [None]
  - HYPOTENSION [None]
  - INJECTION SITE REACTION [None]
